APPROVED DRUG PRODUCT: AZITHROMYCIN
Active Ingredient: AZITHROMYCIN
Strength: EQ 200MG BASE/5ML
Dosage Form/Route: FOR SUSPENSION;ORAL
Application: A211147 | Product #002 | TE Code: AB
Applicant: ZYDUS LIFESCIENCES GLOBAL FZE
Approved: Jul 31, 2018 | RLD: No | RS: No | Type: RX